FAERS Safety Report 10196186 (Version 1)
Quarter: 2014Q2

REPORT INFORMATION
  Report Type: Spontaneous
  Country: GB (occurrence: None)
  Receive Date: 20140521
  Receipt Date: 20140521
  Transmission Date: 20141212
  Serious: Yes (Other)
  Sender: FDA-Public Use
  Company Number: 2014/033

PATIENT
  Age: 67 Year
  Sex: Male

DRUGS (4)
  1. ROPINIROLE [Suspect]
     Indication: PARKINSON^S DISEASE
     Dosage: OD
  2. LEVODOPA/CARBIDOPA [Concomitant]
  3. SELEGILINE [Concomitant]
  4. TRIMETHOPRIM [Concomitant]

REACTIONS (5)
  - Parkinsonism hyperpyrexia syndrome [None]
  - Orthostatic hypotension [None]
  - Urinary tract infection [None]
  - Labile blood pressure [None]
  - Nitrite urine present [None]
